FAERS Safety Report 18285640 (Version 1)
Quarter: 2020Q3

REPORT INFORMATION
  Report Type: Spontaneous
  Country: FR (occurrence: FR)
  Receive Date: 20200918
  Receipt Date: 20200918
  Transmission Date: 20201103
  Serious: Yes (Other)
  Sender: FDA-Public Use
  Company Number: FR-CELGENEUS-FRA-20200903667

PATIENT
  Age: 80 Year
  Sex: Male
  Weight: 65 kg

DRUGS (2)
  1. IMNOVID [Suspect]
     Active Substance: POMALIDOMIDE
     Indication: OFF LABEL USE
  2. IMNOVID [Suspect]
     Active Substance: POMALIDOMIDE
     Indication: NEPHROCALCINOSIS
     Dosage: 4 MILLIGRAM
     Route: 048
     Dates: start: 20190514, end: 20190620

REACTIONS (2)
  - Rash [Recovered/Resolved]
  - Oedema [Recovering/Resolving]

NARRATIVE: CASE EVENT DATE: 20190620
